FAERS Safety Report 21290342 (Version 1)
Quarter: 2022Q3

REPORT INFORMATION
  Report Type: Spontaneous
  Country: KR (occurrence: KR)
  Receive Date: 20220902
  Receipt Date: 20220902
  Transmission Date: 20221027
  Serious: Yes (Death, Other)
  Sender: FDA-Public Use
  Company Number: KR-OTSUKA-2022_042894

PATIENT
  Age: 53 Year
  Sex: Male

DRUGS (10)
  1. BUSULFAN [Suspect]
     Active Substance: BUSULFAN
     Indication: Bone marrow conditioning regimen
     Dosage: 3.2 MG/KG, QD FOR 2D
     Route: 065
  2. BUSULFAN [Suspect]
     Active Substance: BUSULFAN
     Indication: Allogenic stem cell transplantation
  3. FLUDARABINE [Suspect]
     Active Substance: FLUDARABINE PHOSPHATE
     Indication: Bone marrow conditioning regimen
     Dosage: 30 MG/M2, QD FOR 5D
     Route: 065
  4. FLUDARABINE [Suspect]
     Active Substance: FLUDARABINE PHOSPHATE
     Indication: Allogenic stem cell transplantation
  5. ATG-FRESENIUS [Suspect]
     Active Substance: LAPINE T-LYMPHOCYTE IMMUNE GLOBULIN
     Indication: Bone marrow conditioning regimen
     Dosage: 1.25 MG/KG, QD FOR 4D
     Route: 065
  6. ATG-FRESENIUS [Suspect]
     Active Substance: LAPINE T-LYMPHOCYTE IMMUNE GLOBULIN
     Indication: Allogenic stem cell transplantation
  7. GANCICLOVIR [Concomitant]
     Active Substance: GANCICLOVIR
     Indication: Product used for unknown indication
     Dosage: 10 MG/KG, QD (FOR 2 WEEKS)
     Route: 042
  8. GANCICLOVIR [Concomitant]
     Active Substance: GANCICLOVIR
     Dosage: 5 MG/KG, QD
     Route: 042
  9. GANCICLOVIR [Concomitant]
     Active Substance: GANCICLOVIR
     Dosage: 165 MG, QD
     Route: 042
  10. CIDOFOVIR [Concomitant]
     Active Substance: CIDOFOVIR
     Indication: Product used for unknown indication
     Dosage: 5 MG/KG, QD
     Route: 042

REACTIONS (10)
  - Multiple organ dysfunction syndrome [Fatal]
  - Cytomegalovirus infection [Fatal]
  - Cytomegalovirus infection reactivation [Unknown]
  - Cystitis haemorrhagic [Unknown]
  - Respiratory acidosis [Unknown]
  - Cytomegalovirus gastritis [Unknown]
  - Cytomegalovirus infection reactivation [Unknown]
  - Cytomegalovirus colitis [Unknown]
  - Pneumonia cytomegaloviral [Unknown]
  - Encephalitis [Unknown]
